FAERS Safety Report 16772986 (Version 10)
Quarter: 2021Q4

REPORT INFORMATION
  Report Type: Spontaneous
  Country: US (occurrence: US)
  Receive Date: 20190904
  Receipt Date: 20211020
  Transmission Date: 20220303
  Serious: Yes (Disabling)
  Sender: FDA-Public Use
  Company Number: US-AMERICAN REGENT INC-2019001911

PATIENT
  Sex: Female
  Weight: 56.69 kg

DRUGS (45)
  1. INJECTAFER [Suspect]
     Active Substance: FERRIC CARBOXYMALTOSE
     Indication: Iron deficiency anaemia
     Dosage: UNK UNK, SINGLE
     Route: 042
     Dates: start: 20180516, end: 20180516
  2. FERROUS SULFATE [Interacting]
     Active Substance: FERROUS SULFATE
     Indication: Iron deficiency anaemia
     Dosage: 325 MILLIGRAM, QD
     Route: 048
  3. KLONOPIN [Concomitant]
     Active Substance: CLONAZEPAM
     Indication: Temporomandibular joint syndrome
     Dosage: 0.5 MILLIGRAM, PRN
     Route: 048
  4. KLONOPIN [Concomitant]
     Active Substance: CLONAZEPAM
     Dosage: 0.5 MILLIGRAM, 1 IN AM AND 1 QHS
     Route: 048
  5. METANX [Concomitant]
     Active Substance: LEVOMEFOLATE CALCIUM\METHYLCOBALAMIN\PYRIDOXAL PHOSPHATE ANHYDROUS
     Indication: Product used for unknown indication
     Dosage: 1 CAPSULE DAILY
     Route: 048
  6. METHOCARBAMOL [Concomitant]
     Active Substance: METHOCARBAMOL
     Indication: Temporomandibular joint syndrome
     Dosage: 500 MILLIGRAM, PRN
     Route: 048
  7. METHOCARBAMOL [Concomitant]
     Active Substance: METHOCARBAMOL
     Dosage: 500 MILLIGRAM, EVERY EVENING
     Route: 048
  8. METHOCARBAMOL [Concomitant]
     Active Substance: METHOCARBAMOL
     Dosage: 350 MILLIGRAM, PRN
     Route: 048
  9. METHOCARBAMOL [Concomitant]
     Active Substance: METHOCARBAMOL
     Dosage: 750 MG (ONE TABLET), QD AT BEDTIME
     Route: 048
  10. METHOCARBAMOL [Concomitant]
     Active Substance: METHOCARBAMOL
     Dosage: TAKE 2 TABLETS (1,000 MG), QID
     Route: 048
  11. PROBIOTICS NOS [Concomitant]
     Active Substance: PROBIOTICS NOS
     Indication: Product used for unknown indication
     Dosage: 112.5 BILLION CELL CAPSULE DAILY
     Route: 048
  12. RESTASIS [Concomitant]
     Active Substance: CYCLOSPORINE
     Indication: Product used for unknown indication
     Dosage: 2 DROPPERETTES QD
     Route: 047
  13. RESTASIS [Concomitant]
     Active Substance: CYCLOSPORINE
     Dosage: 1-2 DROP IO PRN
     Route: 047
  14. RESTASIS [Concomitant]
     Active Substance: CYCLOSPORINE
     Dosage: 1 DROP EYE-BOTH, Q12H
     Route: 047
  15. RESTASIS [Concomitant]
     Active Substance: CYCLOSPORINE
     Dosage: INSTILL 1 DROP INTO RIGHT EYE, EVERY 12 HRS
     Route: 047
  16. ACZONE [Concomitant]
     Active Substance: DAPSONE
     Indication: Cyst
     Dosage: 5%, SMALL AMOUNT BID
     Route: 061
  17. ACZONE [Concomitant]
     Active Substance: DAPSONE
     Indication: Acne
     Dosage: 7.5% WITH PUMP, QD
     Route: 061
  18. ORACEA [Concomitant]
     Active Substance: DOXYCYCLINE
     Indication: Acne
     Dosage: 40 MILLIGRAM, QD
     Route: 048
  19. CYANOCOBALAMIN [Concomitant]
     Active Substance: CYANOCOBALAMIN
     Indication: Vitamin B complex deficiency
     Dosage: 1000 MICROGRAM, EVERY 30 DAYS
     Route: 030
  20. EPINEPHRINE [Concomitant]
     Active Substance: EPINEPHRINE
     Indication: Product used for unknown indication
     Dosage: AUTO-INJECTOR
  21. FLUTICASONE [Concomitant]
     Active Substance: FLUTICASONE
     Indication: Product used for unknown indication
     Dosage: UNK, PRN
     Route: 065
  22. VITAMIN D3 [Concomitant]
     Active Substance: CHOLECALCIFEROL
     Indication: Vitamin D deficiency
     Dosage: 4000 INTERNATIONAL UNIT, QD
     Route: 048
  23. VITAMIN D3 [Concomitant]
     Active Substance: CHOLECALCIFEROL
     Dosage: 2000 INTERNATIONAL UNIT, QD
     Route: 048
  24. VITAMIN D3 [Concomitant]
     Active Substance: CHOLECALCIFEROL
     Dosage: 1000 INTERNATIONAL UNIT (ONE TABLET), QD
     Route: 048
  25. KETOROLAC TROMETHAMINE [Concomitant]
     Active Substance: KETOROLAC TROMETHAMINE
     Indication: Migraine
     Dosage: UNK, PRN
  26. LOTEMAX [Concomitant]
     Active Substance: LOTEPREDNOL ETABONATE
     Indication: Product used for unknown indication
     Dosage: 1-2 DROPS OP BID
     Route: 047
  27. SUCRALFATE [Concomitant]
     Active Substance: SUCRALFATE
     Indication: Product used for unknown indication
     Dosage: 1 GRAM, QID
     Route: 048
  28. TRAMADOL HCL [Concomitant]
     Active Substance: TRAMADOL HYDROCHLORIDE
     Indication: Product used for unknown indication
     Dosage: 50 MILLIGRAM, Q4-6 H PRN
     Route: 048
  29. PROCTOZONE HC [Concomitant]
     Active Substance: HYDROCORTISONE
     Indication: Haemorrhoids
     Dosage: APPLY A THIN LAYER TO THE AFFECTED AREA 2-4 TIMES PER DAY AS NEEDED
     Route: 061
  30. VITAMIN D NOS [Concomitant]
     Active Substance: VITAMIN D NOS
     Indication: Product used for unknown indication
     Dosage: 1000 INTERNATIONAL UNIT, QD
     Route: 065
  31. VITAMIN B12 + FOLIC ACID [Concomitant]
     Indication: Product used for unknown indication
     Dosage: UNK
     Route: 048
  32. CLOBETASOL [Concomitant]
     Active Substance: CLOBETASOL
     Indication: Vaginal infection
     Dosage: APPLY A THIN LAYER TO THE AFFECTED AREA 2 TIMES PER DAY
     Route: 061
  33. MAGNESIUM [Concomitant]
     Active Substance: MAGNESIUM
     Indication: Product used for unknown indication
     Dosage: 250 MILLIGRAM, QD
     Route: 065
  34. MAGNESIUM [Concomitant]
     Active Substance: MAGNESIUM
     Dosage: 200 MILLIGRAM, QD
     Route: 048
  35. BIFIDOBACTERIUM BIFIDUM W/LACTOBACI/07948201/ [Concomitant]
     Indication: Product used for unknown indication
     Dosage: 1 CAPSULE, QD
     Route: 048
  36. CLARITIN [Concomitant]
     Active Substance: LORATADINE
     Indication: Product used for unknown indication
     Dosage: UNK
     Route: 048
  37. RIZATRIPTAN BENZOATE [Concomitant]
     Active Substance: RIZATRIPTAN BENZOATE
     Indication: Migraine
     Dosage: 10 MILLIGRAM, DISSOLVE 1 AT FIRST SIGN OF MIGRAINE, MAY REPEAT Q 2H PRN, MAX 3 PER DAY
     Route: 048
  38. RIZATRIPTAN BENZOATE [Concomitant]
     Active Substance: RIZATRIPTAN BENZOATE
     Indication: Headache
     Dosage: 5 MILLIGRAM, 1 AOS HEADACHE, MAY REPEAT IN 2H PRN, NO MORE THAN 3 PER DAY AND 6 QW
     Route: 048
  39. PREDNISOLONE [Concomitant]
     Active Substance: PREDNISOLONE
     Indication: Product used for unknown indication
     Dosage: 15MG/5ML; SWISH AND SPIT 25 ML FOR 2 DAYS
     Route: 048
     Dates: start: 20180509, end: 20180510
  40. PREDNISOLONE [Concomitant]
     Active Substance: PREDNISOLONE
     Dosage: 15 MG/5 ML, SWISH AND SPIT 20 ML FOR 2 DAYS
     Route: 048
     Dates: start: 20180511, end: 20180512
  41. PREDNISOLONE [Concomitant]
     Active Substance: PREDNISOLONE
     Dosage: 15 MG/5 ML, SWISH AND SPIT 15 ML
     Route: 048
     Dates: start: 20210513, end: 20210514
  42. PREDNISOLONE [Concomitant]
     Active Substance: PREDNISOLONE
     Dosage: 15 MG/5 ML, SWISH AND SPIT 10 ML FOR 2 DAYS
     Route: 048
     Dates: start: 20210515, end: 20210516
  43. PREDNISOLONE [Concomitant]
     Active Substance: PREDNISOLONE
     Dosage: 15 MG/5 ML, SWISH AND SPIT 5 ML FOR 2 DAYS
     Route: 048
     Dates: start: 20210517, end: 20210518
  44. PREDNISOLONE [Concomitant]
     Active Substance: PREDNISOLONE
     Dosage: 15 MG/5 ML, SWISH AND SPIT 2.5 ML FOR 2 DAYS
     Route: 048
     Dates: start: 20180519, end: 20180520
  45. PREDNISOLONE [Concomitant]
     Active Substance: PREDNISOLONE
     Dosage: 15 MG/5 ML, SWISH AND SPIT 10 ML BID
     Route: 048
     Dates: start: 20210518

REACTIONS (10)
  - Migraine [Not Recovered/Not Resolved]
  - Vision blurred [Not Recovered/Not Resolved]
  - Pain [Not Recovered/Not Resolved]
  - Confusional state [Not Recovered/Not Resolved]
  - Appetite disorder [Not Recovered/Not Resolved]
  - Hypophosphataemia [Recovered/Resolved]
  - Anhedonia [Not Recovered/Not Resolved]
  - Emotional distress [Not Recovered/Not Resolved]
  - Anxiety [Not Recovered/Not Resolved]
  - Product quality issue [Unknown]

NARRATIVE: CASE EVENT DATE: 20180101
